FAERS Safety Report 18687179 (Version 1)
Quarter: 2020Q4

REPORT INFORMATION
  Report Type: Spontaneous
  Country: US (occurrence: US)
  Receive Date: 20201231
  Receipt Date: 20201231
  Transmission Date: 20210114
  Serious: Yes (Hospitalization)
  Sender: FDA-Public Use
  Company Number: US-SA-2020SA371055

PATIENT

DRUGS (21)
  1. MELATONIN [Concomitant]
     Active Substance: MELATONIN
  2. IRON [Concomitant]
     Active Substance: IRON
  3. DULCOLAX (BISACODYL) [Concomitant]
     Active Substance: BISACODYL
     Indication: CONSTIPATION
     Dosage: UNK, AS NEEDED
  4. ALLOPURINOL. [Suspect]
     Active Substance: ALLOPURINOL
     Indication: GOUT
     Dosage: UNK
     Dates: start: 2018, end: 202004
  5. HUMIRA [Suspect]
     Active Substance: ADALIMUMAB
     Route: 058
  6. LOSARTAN. [Concomitant]
     Active Substance: LOSARTAN
  7. MILK OF MAGNESIA [Concomitant]
     Active Substance: MAGNESIUM HYDROXIDE
     Indication: CONSTIPATION
  8. SKYRIZI [Suspect]
     Active Substance: RISANKIZUMAB-RZAA
     Indication: PSORIASIS
     Dosage: UNK
     Route: 058
     Dates: start: 202001
  9. SPIRONOLACTONE. [Concomitant]
     Active Substance: SPIRONOLACTONE
  10. CYCLOBENZAPRINE. [Concomitant]
     Active Substance: CYCLOBENZAPRINE
  11. PLAVIX [Suspect]
     Active Substance: CLOPIDOGREL BISULFATE
     Dosage: UNK
  12. ATORVASTATIN [Concomitant]
     Active Substance: ATORVASTATIN
  13. ASPIRIN [ACETYLSALICYLIC ACID] [Concomitant]
     Active Substance: ASPIRIN
     Dosage: 81 MG
  14. VITAMIN C [Concomitant]
     Active Substance: ASCORBIC ACID
  15. PEPCID [ALUMINIUM HYDROXIDE GEL, DRIED;MAGNESIUM CARBONATE] [Concomitant]
     Active Substance: ALUMINUM HYDROXIDE\MAGNESIUM CARBONATE
  16. COSENTYX [Suspect]
     Active Substance: SECUKINUMAB
  17. CARVEDILOL. [Concomitant]
     Active Substance: CARVEDILOL
  18. DOXAZOSIN [Concomitant]
     Active Substance: DOXAZOSIN MESYLATE
  19. BRILINTA [Concomitant]
     Active Substance: TICAGRELOR
  20. HYDROXYZINE [Concomitant]
     Active Substance: HYDROXYZINE HYDROCHLORIDE
  21. HYDROXYZINE HCL [Concomitant]
     Active Substance: HYDROXYZINE HYDROCHLORIDE

REACTIONS (20)
  - Fungal skin infection [Recovering/Resolving]
  - Stress [Not Recovered/Not Resolved]
  - Back pain [Unknown]
  - Coronary artery occlusion [Recovering/Resolving]
  - Ejection fraction decreased [Not Recovered/Not Resolved]
  - Drug specific antibody [Recovered/Resolved]
  - Arthralgia [Unknown]
  - Cardiac arrest [Recovered/Resolved]
  - Neck pain [Unknown]
  - Psoriasis [Not Recovered/Not Resolved]
  - Coronary artery disease [Recovered/Resolved]
  - Dermatitis allergic [Recovered/Resolved]
  - Adverse drug reaction [Not Recovered/Not Resolved]
  - Diarrhoea [Recovered/Resolved]
  - Myocardial infarction [Unknown]
  - Myocardial infarction [Recovered/Resolved]
  - Hypertension [Recovered/Resolved]
  - Cardiac stress test abnormal [Recovering/Resolving]
  - Nerve injury [Unknown]
  - Therapeutic product effect decreased [Not Recovered/Not Resolved]

NARRATIVE: CASE EVENT DATE: 2020
